FAERS Safety Report 4642908-8 (Version None)
Quarter: 2005Q2

REPORT INFORMATION
  Report Type: 
  Country: None (occurrence: None)
  Receive Date: 20050421
  Receipt Date: 20050408
  Transmission Date: 20051028
  Serious: Yes (Hospitalization)
  Sender: FDA-Public Use
  Company Number: HQWYE955511APR05

PATIENT
  Age: 78 Year
  Sex: Female

DRUGS (12)
  1. CORDARONE [Suspect]
     Indication: ATRIAL FIBRILLATION
     Route: 048
     Dates: start: 20030805, end: 20040825
  2. ZOCOR [Concomitant]
     Dosage: 20 MG 1X PER 1 DAY
     Route: 048
     Dates: start: 20020630, end: 20041110
  3. STILNOX (ZOLPIDEM) [Concomitant]
  4. ISOPTIN [Concomitant]
  5. ZESTRIL [Concomitant]
  6. FLECAINIDE ACETATE [Concomitant]
  7. PREDNISONE TAB [Concomitant]
  8. OMEPRAZOLE [Concomitant]
  9. PREVISCAN (FLUINDIONE) [Concomitant]
  10. LEXOMIL (BROMAZEPAM) [Concomitant]
  11. BRICANYL [Concomitant]
  12. ATROVENT [Concomitant]

REACTIONS (9)
  - BRONCHIAL INFECTION [None]
  - BRONCHIECTASIS [None]
  - CRYPTOGENIC ORGANIZING PNEUMONIA [None]
  - EOSINOPHILIA [None]
  - HYPOTHYROIDISM [None]
  - INFLAMMATION [None]
  - PNEUMONITIS [None]
  - RESPIRATORY DEPRESSION [None]
  - RESPIRATORY DISORDER [None]
